FAERS Safety Report 19305834 (Version 4)
Quarter: 2022Q2

REPORT INFORMATION
  Report Type: Spontaneous
  Country: US (occurrence: US)
  Receive Date: 20210526
  Receipt Date: 20220427
  Transmission Date: 20220721
  Serious: Yes (Other)
  Sender: FDA-Public Use
  Company Number: US-CELLTRION INC.-2021US004868

PATIENT

DRUGS (13)
  1. INFLECTRA [Suspect]
     Active Substance: INFLIXIMAB-DYYB
     Indication: Colitis ulcerative
     Dosage: 300MG IN 250ML 0.9% NS, Q8WK (AS WRITTEN ON HER INFLECTRA INFUSION PAPERWORK)
     Route: 042
     Dates: start: 2018
  2. INFLECTRA [Suspect]
     Active Substance: INFLIXIMAB-DYYB
     Dosage: UNK
     Route: 065
     Dates: start: 20200323
  3. INFLECTRA [Suspect]
     Active Substance: INFLIXIMAB-DYYB
     Dosage: UNK
     Route: 065
     Dates: start: 20200410
  4. INFLECTRA [Suspect]
     Active Substance: INFLIXIMAB-DYYB
     Dosage: 300MG IN 250ML 0.9 NS INFUSED IN IV
     Route: 042
     Dates: start: 20210216
  5. INFLECTRA [Suspect]
     Active Substance: INFLIXIMAB-DYYB
     Dosage: 300 MG EVERY 2 MONTHS (QUANTITY 3, REFILLS 6)
     Route: 042
  6. MESALAMINE [Concomitant]
     Active Substance: MESALAMINE
     Indication: Colitis ulcerative
     Dosage: 4.8 GRAM. DAILY
  7. MESALAMINE [Concomitant]
     Active Substance: MESALAMINE
     Dosage: 2 DF
  8. MESALAMINE [Concomitant]
     Active Substance: MESALAMINE
     Dosage: 1.2G DELAYED RELEASE ONCE A DAY
     Route: 065
     Dates: start: 2018
  9. MESALAMINE [Concomitant]
     Active Substance: MESALAMINE
     Dosage: 1.2G DELAYED RELEASE, WAS DOING 4 FOR QUITE A LONG TIME
     Route: 065
  10. AZATHIOPRINE [Concomitant]
     Active Substance: AZATHIOPRINE
     Indication: Chemotherapy
     Dosage: 50MG BIG CAPSULES - 3 OF THEM EVERY DAY.
     Route: 065
  11. AZATHIOPRINE [Concomitant]
     Active Substance: AZATHIOPRINE
     Dosage: 150 MG, TID
  12. MESALAMINE [Concomitant]
     Active Substance: MESALAMINE
     Indication: Bowel movement irregularity
     Dosage: 1,000 MG ONCE A DAY RECTALLY.
     Route: 054
  13. MESALAMINE [Concomitant]
     Active Substance: MESALAMINE
     Dosage: UNK
     Route: 054

REACTIONS (10)
  - Haemorrhage [Unknown]
  - Feeling abnormal [Unknown]
  - Unevaluable event [Unknown]
  - Pain [Unknown]
  - Dizziness [Unknown]
  - Unemployment [Unknown]
  - Product availability issue [Not Recovered/Not Resolved]
  - Product dose omission issue [Not Recovered/Not Resolved]
  - Off label use [Unknown]
  - Overdose [Unknown]

NARRATIVE: CASE EVENT DATE: 20210216
